FAERS Safety Report 5857877-2 (Version None)
Quarter: 2008Q3

REPORT INFORMATION
  Report Type: 
  Country: None (occurrence: None)
  Receive Date: 20080826
  Receipt Date: 20080620
  Transmission Date: 20090109
  Serious: No
  Sender: FDA-Public Use
  Company Number: US-TEVA-170685USA

PATIENT
  Sex: Male

DRUGS (6)
  1. AZILECT [Suspect]
     Indication: PARKINSON'S DISEASE
     Route: 048
     Dates: start: 20080414
  2. CITALOPRAM HYDROBROMIDE [Interacting]
     Route: 048
     Dates: end: 20080416
  3. SIMVASTATIN [Concomitant]
  4. ZOLPIDEM TARTRATE [Concomitant]
  5. PROPRANOLOL [Concomitant]
  6. ESCITALOPRAM OXALATE [Concomitant]
     Dates: start: 20080515

REACTIONS (1)
  - DRUG INTERACTION [None]
